FAERS Safety Report 9696808 (Version 4)
Quarter: 2014Q2

REPORT INFORMATION
  Report Type: Report from Study
  Country: FR (occurrence: FR)
  Receive Date: 20131119
  Receipt Date: 20140407
  Transmission Date: 20141212
  Serious: Yes (Hospitalization)
  Sender: FDA-Public Use
  Company Number: FR-ROCHE-1305576

PATIENT
  Age: 45 Year
  Sex: Male
  Weight: 59.2 kg

DRUGS (15)
  1. TOCILIZUMAB [Suspect]
     Indication: RHEUMATOID ARTHRITIS
     Dosage: DATE OF LAST DOSE PRIOR TO SAE: 26/APR/2013
     Route: 065
     Dates: start: 20130301
  2. RABEPRAZOLE [Concomitant]
     Route: 065
     Dates: start: 20120629
  3. KETOROLAC TROMETAMOL [Concomitant]
     Dosage: 1 DROP THREE TIMES EVERY DAY IN BOTH EYES
     Route: 065
     Dates: start: 20120915
  4. FLURBIPROFENE [Concomitant]
     Route: 065
     Dates: start: 20120629
  5. PARACETAMOL [Concomitant]
     Dosage: MAX 3 G PER DAY
     Route: 065
     Dates: start: 20130330
  6. GAVISCON (FRANCE) [Concomitant]
     Dosage: 1 BAG
     Route: 065
     Dates: start: 201304
  7. HYALURONATE SODIUM [Concomitant]
     Route: 065
     Dates: start: 20130701, end: 20130701
  8. PYOSTACINE [Concomitant]
     Route: 065
     Dates: start: 20131105
  9. DYNEXAN (FRANCE) [Concomitant]
     Dosage: 1 APPLICATION
     Route: 065
     Dates: start: 20131007, end: 20131105
  10. METHOTREXATE [Concomitant]
     Route: 065
     Dates: start: 20130108, end: 20130329
  11. METHOTREXATE [Concomitant]
     Route: 065
     Dates: start: 20130330, end: 20130429
  12. METHOTREXATE [Concomitant]
     Route: 065
     Dates: start: 20130430, end: 20131022
  13. METHOTREXATE [Concomitant]
     Route: 065
     Dates: start: 20131024, end: 20131130
  14. METHOTREXATE [Concomitant]
     Route: 065
     Dates: start: 20131207
  15. FOLIC ACID [Concomitant]
     Route: 065
     Dates: start: 200909

REACTIONS (1)
  - Osteonecrosis [Recovered/Resolved]
